FAERS Safety Report 19059864 (Version 1)
Quarter: 2021Q1

REPORT INFORMATION
  Report Type: Spontaneous
  Country: NA (occurrence: NA)
  Receive Date: 20210326
  Receipt Date: 20210326
  Transmission Date: 20210420
  Serious: Yes (Life-Threatening, Hospitalization, Disabling)
  Sender: FDA-Public Use
  Company Number: NA-TERSERA THERAPEUTICS LLC-2021TRS001375

PATIENT

DRUGS (1)
  1. ZOLADEX [Suspect]
     Active Substance: GOSERELIN ACETATE
     Indication: ADENOMYOSIS
     Dosage: 3.6, EVERY FOUR WEEKS
     Route: 058
     Dates: start: 20210301, end: 20210319

REACTIONS (2)
  - Decreased activity [Unknown]
  - Bone pain [Unknown]

NARRATIVE: CASE EVENT DATE: 20210306
